FAERS Safety Report 24683711 (Version 1)
Quarter: 2024Q4

REPORT INFORMATION
  Report Type: Spontaneous
  Country: CN (occurrence: CN)
  Receive Date: 20241202
  Receipt Date: 20241202
  Transmission Date: 20250115
  Serious: Yes (Hospitalization, Other)
  Sender: NOVO NORDISK
  Company Number: CN-NOVOPROD-1322803

PATIENT
  Age: 68 Year
  Sex: Male
  Weight: 67 kg

DRUGS (5)
  1. INSULIN ASPART [Suspect]
     Active Substance: INSULIN ASPART
     Indication: Type 2 diabetes mellitus
     Dosage: 8 UNITS BEFORE BREAKFAST AND 10 UNITS BEFORE DINNER
     Dates: start: 2008
  2. INSULIN ASPART [Suspect]
     Active Substance: INSULIN ASPART
     Dosage: 16 UNITS BEFORE BREAKFAST AND 20 UNITS BEFORE DINNER
  3. SITAGLIPTIN [Concomitant]
     Active Substance: SITAGLIPTIN
     Indication: Product used for unknown indication
     Dosage: 10 MG, QD(BEFORE BREAKFAST)
     Route: 048
  4. METFORMIN [Concomitant]
     Active Substance: METFORMIN HYDROCHLORIDE
     Indication: Product used for unknown indication
     Dosage: 500 MG, TID(WITH MEALS)
  5. GLUCOBAY [Concomitant]
     Active Substance: ACARBOSE
     Indication: Product used for unknown indication
     Dosage: 100 MG, QD(AT NOON WITH MEALS)

REACTIONS (3)
  - Neuropathy peripheral [Unknown]
  - Cataract [Not Recovered/Not Resolved]
  - Blood glucose increased [Not Recovered/Not Resolved]

NARRATIVE: CASE EVENT DATE: 20190101
